FAERS Safety Report 4547959-X (Version None)
Quarter: 2004Q4

REPORT INFORMATION
  Report Type: 
  Country: None (occurrence: None)
  Receive Date: 20041220
  Receipt Date: 20031023
  Transmission Date: 20050328
  Serious: Yes (Hospitalization, Other)
  Sender: FDA-Public Use
  Company Number: US_000337707

PATIENT
  Sex: Female
  Weight: 59 kg

DRUGS (11)
  1. LENTE ILETIN II (PORK) [Suspect]
     Indication: DIABETES MELLITUS
     Dosage: 20 U/IN THE MORNING
     Dates: start: 20000414
  2. HUMULIN 70/30 [Suspect]
     Indication: DIABETES MELLITUS INSULIN-DEPENDENT
     Dosage: 30 U/IN THE MORNING
     Dates: start: 20000101, end: 20000401
  3. HUMULIN L [Suspect]
     Indication: DIABETES MELLITUS INSULIN-DEPENDENT
     Dosage: 20 U/IN THE MORNING
     Dates: start: 20000117, end: 20000409
  4. REGULAR ILETIN II (PORK) [Suspect]
     Indication: DIABETES MELLITUS
     Dosage: 4 U/IN THE MORNING
     Dates: start: 20000414
  5. HUMULIN R [Suspect]
     Indication: DIABETES MELLITUS INSULIN-DEPENDENT
     Dosage: 6 U/AS NEEDED
     Dates: start: 20000101
  6. ILETIN [Suspect]
     Indication: DIABETES MELLITUS INSULIN-DEPENDENT
     Dates: start: 19650101, end: 20000101
  7. LENTE ILETIN (BEEF-PORK) INSULIN ZINC [Suspect]
     Indication: DIABETES MELLITUS
     Dates: start: 19650101, end: 20000217
  8. ILETIN II [Suspect]
     Indication: DIABETES MELLITUS
     Dosage: 20 U/IN THE MORNING
     Dates: start: 20031020
  9. HUMULIN N [Suspect]
     Indication: DIABETES MELLITUS
  10. SYNTHROID [Concomitant]
  11. MAXAIR [Concomitant]

REACTIONS (17)
  - ABNORMAL BEHAVIOUR [None]
  - BLOOD GLUCOSE DECREASED [None]
  - BLOOD GLUCOSE INCREASED [None]
  - DRUG INEFFECTIVE [None]
  - EYE DISORDER [None]
  - HIP FRACTURE [None]
  - HYPERGLYCAEMIA [None]
  - HYPOACUSIS [None]
  - HYPOGLYCAEMIA [None]
  - HYPOGLYCAEMIA UNAWARENESS [None]
  - LOSS OF CONSCIOUSNESS [None]
  - MEMORY IMPAIRMENT [None]
  - MENTAL IMPAIRMENT [None]
  - PAIN IN EXTREMITY [None]
  - SOMNOLENCE [None]
  - VISUAL ACUITY REDUCED [None]
  - WEIGHT INCREASED [None]
